FAERS Safety Report 4879444-X (Version None)
Quarter: 2005Q4

REPORT INFORMATION
  Report Type: 
  Country: None (occurrence: None)
  Receive Date: 20051209
  Receipt Date: 20050928
  Transmission Date: 20060501
  Serious: Yes (Other)
  Sender: FDA-Public Use
  Company Number: USA-2002-0000692

PATIENT
  Age: 40 Year
  Sex: Female
  Weight: 68 kg

DRUGS (7)
  1. OXYCONTIN [Suspect]
     Indication: PAIN
     Dosage: 40 MG, TID, ORAL
     Route: 048
     Dates: start: 20001003, end: 20001230
  2. LORCET-HD [Suspect]
  3. XANAX [Suspect]
     Dosage: 2 MG, QID, ORAL
     Route: 048
  4. METHADONE HCL [Suspect]
  5. CARISOPRODOL [Concomitant]
  6. ACETAMINOPHEN AND HYDROCODONE BITARTRATE [Concomitant]
  7. VIOXX [Concomitant]

REACTIONS (9)
  - BACK PAIN [None]
  - CONVULSION [None]
  - DRUG DEPENDENCE [None]
  - DRUG WITHDRAWAL SYNDROME [None]
  - GENERALISED ANXIETY DISORDER [None]
  - PANIC ATTACK [None]
  - POLYSUBSTANCE DEPENDENCE [None]
  - SEDATION [None]
  - UPPER RESPIRATORY TRACT INFECTION [None]
